FAERS Safety Report 8968348 (Version 1)
Quarter: 2012Q4

REPORT INFORMATION
  Report Type: 
  Country: JP (occurrence: JP)
  Receive Date: 20121217
  Receipt Date: 20121217
  Transmission Date: 20130627
  Serious: Yes (Other)
  Sender: FDA-Public Use
  Company Number: JP-MYLANLABS-2012S1025169

PATIENT
  Age: 58 Year
  Sex: Male

DRUGS (1)
  1. FAMOTIDINE [Suspect]
     Indication: ABDOMINAL PAIN UPPER
     Route: 048

REACTIONS (1)
  - Urethral haemorrhage [Recovered/Resolved]
